FAERS Safety Report 4478159-X (Version None)
Quarter: 2004Q4

REPORT INFORMATION
  Report Type: 
  Country: None (occurrence: None)
  Receive Date: 20041019
  Receipt Date: 20041008
  Transmission Date: 20050328
  Serious: Yes (Hospitalization)
  Sender: FDA-Public Use
  Company Number: BE-JNJFOC-20041003337

PATIENT
  Sex: Female

DRUGS (42)
  1. BLINDED; INFLIXIMAB, RECOMBINANT [Suspect]
     Route: 042
  2. BLINDED; INFLIXIMAB, RECOMBINANT [Suspect]
     Route: 042
  3. BLINDED; INFLIXIMAB, RECOMBINANT [Suspect]
     Route: 042
  4. BLINDED; INFLIXIMAB, RECOMBINANT [Suspect]
     Route: 042
  5. BLINDED; INFLIXIMAB, RECOMBINANT [Suspect]
     Route: 042
  6. BLINDED; INFLIXIMAB, RECOMBINANT [Suspect]
     Route: 042
  7. BLINDED; INFLIXIMAB, RECOMBINANT [Suspect]
     Route: 042
  8. BLINDED; INFLIXIMAB, RECOMBINANT [Suspect]
     Route: 042
  9. BLINDED; INFLIXIMAB, RECOMBINANT [Suspect]
     Route: 042
  10. BLINDED; INFLIXIMAB, RECOMBINANT [Suspect]
     Route: 042
  11. BLINDED; INFLIXIMAB, RECOMBINANT [Suspect]
     Route: 042
  12. BLINDED; INFLIXIMAB, RECOMBINANT [Suspect]
     Route: 042
  13. BLINDED; INFLIXIMAB, RECOMBINANT [Suspect]
     Route: 042
  14. BLINDED; INFLIXIMAB, RECOMBINANT [Suspect]
     Route: 042
  15. BLINDED; INFLIXIMAB, RECOMBINANT [Suspect]
     Route: 042
  16. BLINDED; INFLIXIMAB, RECOMBINANT [Suspect]
     Indication: ANKYLOSING SPONDYLITIS
     Route: 042
  17. PLACEBO [Suspect]
     Route: 042
  18. PLACEBO [Suspect]
     Route: 042
  19. PLACEBO [Suspect]
     Route: 042
  20. PLACEBO [Suspect]
     Route: 042
  21. PLACEBO [Suspect]
     Route: 042
  22. PLACEBO [Suspect]
     Route: 042
  23. PLACEBO [Suspect]
     Route: 042
  24. PLACEBO [Suspect]
     Route: 042
  25. PLACEBO [Suspect]
     Route: 042
  26. PLACEBO [Suspect]
     Route: 042
  27. PLACEBO [Suspect]
     Route: 042
  28. PLACEBO [Suspect]
     Route: 042
  29. PLACEBO [Suspect]
     Route: 042
  30. PLACEBO [Suspect]
     Route: 042
  31. PLACEBO [Suspect]
     Route: 042
  32. PLACEBO [Suspect]
     Indication: ANKYLOSING SPONDYLITIS
     Route: 042
  33. EMCONCOR [Concomitant]
     Route: 049
  34. CIPRAMIL [Concomitant]
     Route: 049
  35. TRAZOLAN [Concomitant]
     Route: 049
  36. LORAMET [Concomitant]
     Route: 049
  37. VITAMIN B COMPLEX CAP [Concomitant]
     Route: 049
  38. IBUPROFEN [Concomitant]
     Route: 049
  39. TEMESTA [Concomitant]
     Route: 049
  40. OMEPRAZOLE [Concomitant]
     Route: 049
  41. BACTRIM DS [Concomitant]
     Route: 049
  42. BACTRIM DS [Concomitant]
     Route: 049

REACTIONS (2)
  - CAMPYLOBACTER INFECTION [None]
  - DIVERTICULITIS [None]
